FAERS Safety Report 23934178 (Version 2)
Quarter: 2024Q3

REPORT INFORMATION
  Report Type: Spontaneous
  Country: CA (occurrence: CA)
  Receive Date: 20240603
  Receipt Date: 20240821
  Transmission Date: 20241017
  Serious: Yes (Hospitalization, Other)
  Sender: TEVA
  Company Number: CA-TEVA-VS-3203621

PATIENT
  Age: 69 Year
  Sex: Male

DRUGS (8)
  1. PREDNISONE [Suspect]
     Active Substance: PREDNISONE
     Indication: Syncope
     Dosage: DOSAGE FORM: NOT SPECIFIED
     Route: 065
  2. TERBINAFINE HYDROCHLORIDE [Suspect]
     Active Substance: TERBINAFINE HYDROCHLORIDE
     Indication: Rash pruritic
     Route: 065
  3. TERBINAFINE HYDROCHLORIDE [Suspect]
     Active Substance: TERBINAFINE HYDROCHLORIDE
     Indication: Rash pruritic
     Route: 065
  4. ASPIRIN [Concomitant]
     Active Substance: ASPIRIN
     Indication: Product used for unknown indication
     Dosage: DOSAGE FORM: NOT SPECIFIED
     Route: 065
  5. CLOPIDOGREL [Concomitant]
     Active Substance: CLOPIDOGREL BISULFATE
     Indication: Product used for unknown indication
     Route: 065
  6. EZETIMIBE [Concomitant]
     Active Substance: EZETIMIBE
     Indication: Product used for unknown indication
     Route: 065
  7. METOPROLOL [Concomitant]
     Active Substance: METOPROLOL
     Indication: Product used for unknown indication
     Route: 065
  8. PREDNISONE [Concomitant]
     Active Substance: PREDNISONE
     Indication: Product use in unapproved indication
     Route: 065

REACTIONS (21)
  - Erythema [Recovering/Resolving]
  - Skin hyperplasia [Recovering/Resolving]
  - Fatigue [Recovering/Resolving]
  - Hypocalcaemia [Recovering/Resolving]
  - Malaise [Recovering/Resolving]
  - Mucosal erosion [Recovering/Resolving]
  - Nail pitting [Recovering/Resolving]
  - Neutrophilia [Recovering/Resolving]
  - Nikolsky^s sign [Recovering/Resolving]
  - Oral pain [Recovering/Resolving]
  - Pain of skin [Recovering/Resolving]
  - Psoriasis [Recovering/Resolving]
  - Pustular psoriasis [Recovering/Resolving]
  - Pustule [Recovering/Resolving]
  - Rash pustular [Recovering/Resolving]
  - Renal impairment [Recovering/Resolving]
  - Skin disorder [Recovering/Resolving]
  - Skin exfoliation [Recovering/Resolving]
  - Swelling face [Recovering/Resolving]
  - Toxic epidermal necrolysis [Recovering/Resolving]
  - Contraindicated product prescribed [Recovering/Resolving]
